FAERS Safety Report 4738844-9 (Version None)
Quarter: 2005Q3

REPORT INFORMATION
  Report Type: 
  Country: None (occurrence: None)
  Receive Date: 20050804
  Receipt Date: 20050722
  Transmission Date: 20060218
  Serious: Yes (Disabling)
  Sender: FDA-Public Use
  Company Number: 2005S1005068

PATIENT
  Age: 65 Year
  Sex: Male

DRUGS (8)
  1. APOMORPHINE HYDROCHLORIDE (APOMORPHINE HYDROCHLORIDE) [Suspect]
     Indication: PARKINSON'S DISEASE
     Dosage: 200 MG;QD; SC
     Route: 058
     Dates: start: 20050323, end: 20050505
  2. LEVODOPA/CARBODOPA [Concomitant]
  3. LEVODOPA/BENSERAZIDE HYDROCHLORIDE [Concomitant]
  4. AMITRIPTYLINE [Concomitant]
  5. RIVASTIGMINE [Concomitant]
  6. QUETIAPINE FUMARATE [Concomitant]
  7. LATANOPROST [Concomitant]
  8. SOTALOL HCL [Concomitant]

REACTIONS (5)
  - DRUG INEFFECTIVE [None]
  - FALL [None]
  - GENERAL PHYSICAL HEALTH DETERIORATION [None]
  - URINARY INCONTINENCE [None]
  - URINARY RETENTION [None]
